FAERS Safety Report 24624520 (Version 2)
Quarter: 2024Q4

REPORT INFORMATION
  Report Type: Spontaneous
  Country: GR (occurrence: GR)
  Receive Date: 20241115
  Receipt Date: 20241219
  Transmission Date: 20250114
  Serious: No
  Sender: PFIZER
  Company Number: GR-PFIZER INC-PV202400145595

PATIENT
  Age: 9 Year
  Sex: Female
  Weight: 19.8 kg

DRUGS (1)
  1. GENOTROPIN [Suspect]
     Active Substance: SOMATROPIN
     Indication: Short stature
     Dosage: 0.6 MG, DAILY, 7 DAYS (NO DAYS OFF)
     Route: 058
     Dates: start: 20230130

REACTIONS (3)
  - Poor quality device used [Unknown]
  - Device use error [Unknown]
  - Device material issue [Unknown]

NARRATIVE: CASE EVENT DATE: 20241106
